FAERS Safety Report 4709649-X (Version None)
Quarter: 2005Q3

REPORT INFORMATION
  Report Type: 
  Country: None (occurrence: None)
  Receive Date: 20050707
  Receipt Date: 20050616
  Transmission Date: 20060218
  Serious: Yes (Other)
  Sender: FDA-Public Use
  Company Number: USA0506100706

PATIENT

DRUGS (1)
  1. GEMZAR [Suspect]

REACTIONS (1)
  - CAPILLARY LEAK SYNDROME [None]
